FAERS Safety Report 24152465 (Version 1)
Quarter: 2024Q3

REPORT INFORMATION
  Report Type: Spontaneous
  Country: US (occurrence: US)
  Receive Date: 20240730
  Receipt Date: 20240730
  Transmission Date: 20241017
  Serious: No
  Sender: DR REDDYS
  Company Number: US-DRL-USA-LIT/USA/24/0010903

PATIENT
  Age: 73 Year
  Sex: Female

DRUGS (5)
  1. FENOFIBRATE [Suspect]
     Active Substance: FENOFIBRATE
     Indication: Type IIa hyperlipidaemia
  2. icosapentyl ethyl [Concomitant]
     Indication: Type IIa hyperlipidaemia
  3. EVOLOCUMAB [Concomitant]
     Active Substance: EVOLOCUMAB
     Indication: Type IIa hyperlipidaemia
  4. ROSUVASTATIN [Concomitant]
     Active Substance: ROSUVASTATIN\ROSUVASTATIN CALCIUM
     Indication: Type IIa hyperlipidaemia
  5. EZETIMIBE [Concomitant]
     Active Substance: EZETIMIBE
     Indication: Type IIa hyperlipidaemia

REACTIONS (1)
  - Drug resistance [Unknown]
